FAERS Safety Report 17633461 (Version 1)
Quarter: 2020Q2

REPORT INFORMATION
  Report Type: Spontaneous
  Country: US (occurrence: US)
  Receive Date: 20200407
  Receipt Date: 20200407
  Transmission Date: 20200713
  Serious: No
  Sender: FDA-Public Use
  Company Number: US-AMGEN-USASP2020054020

PATIENT
  Age: 61 Year
  Sex: Female

DRUGS (2)
  1. IVABRADINE [Suspect]
     Active Substance: IVABRADINE
     Indication: LEFT VENTRICLE OUTFLOW TRACT OBSTRUCTION
     Dosage: UNK
     Route: 065
  2. IVABRADINE [Suspect]
     Active Substance: IVABRADINE
     Indication: STRESS CARDIOMYOPATHY

REACTIONS (1)
  - Off label use [Unknown]
